FAERS Safety Report 24307182 (Version 1)
Quarter: 2024Q3

REPORT INFORMATION
  Report Type: Spontaneous
  Country: CN (occurrence: CN)
  Receive Date: 20240911
  Receipt Date: 20240911
  Transmission Date: 20241017
  Serious: Yes (Other)
  Sender: GLAND PHARMA
  Company Number: CN-GLANDPHARMA-CN-2024GLNLIT00746

PATIENT

DRUGS (6)
  1. CARBOPLATIN [Suspect]
     Active Substance: CARBOPLATIN
     Indication: Non-small cell lung cancer
     Route: 065
  2. CISPLATIN [Suspect]
     Active Substance: CISPLATIN
     Indication: Non-small cell lung cancer
     Route: 065
  3. CAMRELIZUMAB [Suspect]
     Active Substance: CAMRELIZUMAB
     Indication: Non-small cell lung cancer
     Route: 065
  4. PACLITAXEL [Suspect]
     Active Substance: PACLITAXEL
     Indication: Non-small cell lung cancer
     Route: 065
  5. PEMETREXED [Suspect]
     Active Substance: PEMETREXED
     Indication: Non-small cell lung cancer
     Route: 065
  6. PLATINUM [Suspect]
     Active Substance: PLATINUM
     Indication: Non-small cell lung cancer
     Route: 065

REACTIONS (2)
  - Pneumonia [Unknown]
  - Product use in unapproved indication [Unknown]
